FAERS Safety Report 16754011 (Version 1)
Quarter: 2019Q4

REPORT INFORMATION
  Report Type: Spontaneous
  Country: US (occurrence: US)
  Receive Date: 20190828
  Receipt Date: 20190828
  Transmission Date: 20200122
  Serious: Yes (Disabling, Other)
  Sender: FDA-Public Use
  Company Number: None

PATIENT
  Age: 33 Year
  Sex: Male
  Weight: 92.25 kg

DRUGS (1)
  1. ENTECAVIR TABLETS, USP [Suspect]
     Active Substance: ENTECAVIR

REACTIONS (4)
  - Product quality issue [None]
  - Product substitution issue [None]
  - Paraesthesia [None]
  - Discomfort [None]

NARRATIVE: CASE EVENT DATE: 20190826
